FAERS Safety Report 17845328 (Version 1)
Quarter: 2020Q2

REPORT INFORMATION
  Report Type: Spontaneous
  Country: FR (occurrence: FR)
  Receive Date: 20200601
  Receipt Date: 20200601
  Transmission Date: 20200714
  Serious: Yes (Hospitalization, Other)
  Sender: FDA-Public Use
  Company Number: FR-ACCORD-182380

PATIENT
  Age: 28 Year
  Sex: Female
  Weight: 59 kg

DRUGS (6)
  1. QUETIAPINE. [Suspect]
     Active Substance: QUETIAPINE
     Route: 048
     Dates: start: 20200414, end: 20200414
  2. LEPTICUR [Suspect]
     Active Substance: TROPATEPINE HYDROCHLORIDE
     Dosage: STRENGTH: 10 MG TABLET
     Route: 048
     Dates: start: 20200414, end: 20200414
  3. SERESTA [Suspect]
     Active Substance: OXAZEPAM
     Route: 048
     Dates: start: 20200414, end: 20200414
  4. ZOPICLONE [Suspect]
     Active Substance: ZOPICLONE
     Dosage: NP
     Route: 048
     Dates: start: 20200414, end: 20200414
  5. IMOVANE [Suspect]
     Active Substance: ZOPICLONE
     Dosage: NP
     Route: 048
     Dates: start: 20200414, end: 20200414
  6. VENLAFAXINE/VENLAFAXINE HYDROCHLORIDE [Suspect]
     Active Substance: VENLAFAXINE HYDROCHLORIDE
     Route: 048
     Dates: start: 20200414, end: 20200414

REACTIONS (5)
  - Poisoning deliberate [Unknown]
  - Housebound [Recovered/Resolved]
  - Coma [Recovered/Resolved]
  - Pneumonia aspiration [Recovering/Resolving]
  - Intentional overdose [Unknown]

NARRATIVE: CASE EVENT DATE: 20200414
